FAERS Safety Report 4769871-3 (Version None)
Quarter: 2005Q3

REPORT INFORMATION
  Report Type: 
  Country: None (occurrence: None)
  Receive Date: 20050915
  Receipt Date: 20050831
  Transmission Date: 20060218
  Serious: Yes (Disabling)
  Sender: FDA-Public Use
  Company Number: HQWYE234502SEP05

PATIENT
  Sex: Female

DRUGS (3)
  1. ENBREL [Suspect]
     Indication: RHEUMATOID ARTHRITIS
     Route: 058
     Dates: start: 20050730, end: 20050831
  2. ARAVA [Concomitant]
     Indication: RHEUMATOID ARTHRITIS
     Dosage: 20 MG EVERY
     Route: 048
  3. ARAVA [Concomitant]
     Dosage: 20 MG UNSPECIFIED FREQUENCY

REACTIONS (2)
  - CONDITION AGGRAVATED [None]
  - RHEUMATOID NODULE [None]
